FAERS Safety Report 10032822 (Version 2)
Quarter: 2014Q1

REPORT INFORMATION
  Report Type: Spontaneous
  Country: FR (occurrence: FR)
  Receive Date: 20140324
  Receipt Date: 20140324
  Transmission Date: 20141002
  Serious: Yes (Death, Hospitalization)
  Sender: FDA-Public Use
  Company Number: FR-PFIZER INC-HQWYE459323JAN06

PATIENT
  Age: 11 Year
  Sex: Male

DRUGS (7)
  1. ALDACTONE [Suspect]
     Dosage: UNK
     Route: 048
     Dates: start: 20010101, end: 20011102
  2. OROKEN [Suspect]
     Dosage: 160 MG,DAILY
     Route: 048
     Dates: start: 20011007, end: 20011010
  3. JOSACINE [Suspect]
     Dosage: 500 MG TWICE DAILY
     Route: 048
     Dates: start: 20011010, end: 20011029
  4. PREVISCAN [Suspect]
     Dosage: UNK
     Route: 048
     Dates: start: 19911101, end: 20011101
  5. LOPRIL [Concomitant]
     Dosage: UNK
  6. DIGOXIN [Concomitant]
     Dosage: UNK
  7. LASILIX [Concomitant]
     Dosage: UNK

REACTIONS (7)
  - Pulmonary haemorrhage [Fatal]
  - Gastrointestinal haemorrhage [Fatal]
  - Hypersensitivity vasculitis [Unknown]
  - Aspartate aminotransferase increased [Unknown]
  - Alanine aminotransferase increased [Unknown]
  - Blood bilirubin increased [Unknown]
  - Coagulation factor decreased [Unknown]
